FAERS Safety Report 14650781 (Version 1)
Quarter: 2018Q1

REPORT INFORMATION
  Report Type: Spontaneous
  Country: LT (occurrence: LT)
  Receive Date: 20180316
  Receipt Date: 20180316
  Transmission Date: 20180509
  Serious: Yes (Other)
  Sender: FDA-Public Use
  Company Number: LT-TEVA-2018-LT-870944

PATIENT
  Age: 54 Year
  Sex: Male

DRUGS (4)
  1. MIDAZOLAM [Concomitant]
     Active Substance: MIDAZOLAM HYDROCHLORIDE
     Indication: ANAESTHESIA
  2. DEXAMETHASONE 1 MG/ML [Concomitant]
     Indication: ANAESTHESIA
  3. FENTANIL [Concomitant]
     Active Substance: FENTANYL
     Indication: ANAESTHESIA
  4. DICLOFENAC [Suspect]
     Active Substance: DICLOFENAC
     Indication: PERIOPERATIVE ANALGESIA
     Route: 065

REACTIONS (5)
  - Blood pressure decreased [Recovered/Resolved]
  - Anaphylactic reaction [Recovered/Resolved]
  - Chest discomfort [Recovered/Resolved]
  - Erythema [Recovered/Resolved]
  - Nausea [Recovered/Resolved]
